FAERS Safety Report 6833639-4 (Version None)
Quarter: 2010Q3

REPORT INFORMATION
  Report Type: 
  Country: None (occurrence: None)
  Receive Date: 20100712
  Receipt Date: 20070330
  Transmission Date: 20110219
  Serious: No
  Sender: FDA-Public Use
  Company Number: US-PFIZER INC-2007026229

PATIENT
  Age: 53 Year
  Sex: Female

DRUGS (2)
  1. CHANTIX [Suspect]
     Indication: SMOKING CESSATION THERAPY
     Route: 048
     Dates: start: 20070301, end: 20070301
  2. DRUGS FOR TREATMENT OF BONE DISEASES [Concomitant]
     Indication: OSTEOPOROSIS

REACTIONS (2)
  - EUPHORIC MOOD [None]
  - SOMNOLENCE [None]
